FAERS Safety Report 8588844-6 (Version None)
Quarter: 2012Q3

REPORT INFORMATION
  Report Type: 
  Country: None (occurrence: None)
  Receive Date: 20120813
  Receipt Date: 20120807
  Transmission Date: 20120928
  Serious: Yes (Other)
  Sender: FDA-Public Use
  Company Number: US-ASTRAZENECA-2011SE41513

PATIENT
  Age: 21228 Day
  Sex: Female

DRUGS (51)
  1. ARMODAFINIL [Concomitant]
     Dates: start: 20060208
  2. IMITREX [Concomitant]
     Dosage: 50 MG TABLET TAKE ONE TABLET AT ONSET OF HEADACHE AND REPEAT IN TWO HOURS IF NEEDED
     Dates: start: 20070526
  3. NEXIUM [Suspect]
     Route: 048
     Dates: start: 20021107
  4. NEXIUM [Suspect]
     Route: 048
     Dates: start: 20061106
  5. NEXIUM [Suspect]
     Route: 048
     Dates: start: 20070526
  6. PREDNISONE TAB [Concomitant]
     Dosage: WITH FOOD OR MILK
     Dates: start: 20061002
  7. RISPERDAL [Concomitant]
     Dates: start: 20040909
  8. CORGARD [Concomitant]
     Dates: start: 20021107
  9. CELEBREX [Concomitant]
     Dosage: WITH FOOD OR MILK
     Dates: start: 20060920
  10. LIBRIUM [Concomitant]
     Dosage: 10 MG PRN
     Dates: start: 20060919
  11. PREDNISONE TAB [Concomitant]
     Dates: start: 20060313
  12. VICODIN [Concomitant]
     Dosage: 7.5-325 MG TAKE ONE TABLET EVERY SIX HOURS
     Dates: start: 20070531
  13. TEQUIN [Concomitant]
     Dates: start: 20060227
  14. CLONAZEPAM [Concomitant]
     Dates: start: 20070613
  15. IMITREX [Concomitant]
     Indication: HEADACHE
     Dates: start: 20060101
  16. CELEXA [Concomitant]
     Dates: start: 20041009
  17. STELAZINE [Concomitant]
     Dates: start: 20021107
  18. CLARITIN-D [Concomitant]
     Dosage: ONE TABLET PER DAY PRN
     Route: 048
     Dates: start: 20070905
  19. RISPERDAL [Concomitant]
     Dates: start: 20060308
  20. AMITRIPTYLINE HCL [Concomitant]
     Dates: start: 20040909
  21. FIORICET [Concomitant]
     Dates: start: 20021107
  22. ZYRTEC [Concomitant]
     Dates: start: 20060220
  23. ROBAXIN [Concomitant]
     Dates: start: 20060216
  24. BUT/ASA/CAFF [Concomitant]
     Dosage: TAKE ONE CAPSULE EVERY SIX HOURS AS NEEDED
     Dates: start: 20070521
  25. ELAVIL [Concomitant]
     Dates: start: 20021107
  26. NEXIUM [Suspect]
     Route: 048
     Dates: start: 20060207
  27. CEPHALEXIN [Concomitant]
     Dates: start: 20060315
  28. CEPHALEXIN [Concomitant]
     Dates: start: 20070529
  29. VICODIN [Concomitant]
     Dates: start: 20021107
  30. VICODIN [Concomitant]
     Dosage: 5MG-500MG
     Dates: start: 20060220
  31. AMITRIPTYLINE HCL [Concomitant]
     Dates: start: 20060308
  32. OMACOR [Concomitant]
     Dates: start: 20060223
  33. FIORICET [Concomitant]
     Dosage: TAKE ONE TABLET 4 TIMES DAILY AS NEEDED
     Dates: start: 20060911
  34. BIAXIN XL [Concomitant]
     Dates: start: 20060220
  35. METHYLPREDNISOLONE [Concomitant]
     Dates: start: 20060216
  36. LOMOTIL [Concomitant]
     Dosage: 2.5-0.25 MG
     Dates: start: 20060210
  37. BENADRYL [Concomitant]
     Dosage: 25 MG TWO TABLET PER DAY PRN
     Route: 048
     Dates: start: 20070905
  38. CORGARD [Concomitant]
     Dates: start: 20060223
  39. CORGARD [Concomitant]
     Dates: start: 20060920
  40. FIORICET [Concomitant]
     Dosage: 325-40-50
     Dates: start: 20060220
  41. CLONAZEPAM [Concomitant]
     Dates: start: 20060208
  42. LYRICA [Concomitant]
     Dates: start: 20070618
  43. VICODIN [Concomitant]
     Dosage: 10 MG-650 MG
     Dates: start: 20060203
  44. ROBAXIN [Concomitant]
     Dates: start: 20070531
  45. CELEBREX [Concomitant]
     Dates: start: 20060201
  46. CELEXA [Concomitant]
     Dates: start: 20021107
  47. NEXIUM [Suspect]
     Indication: GASTROOESOPHAGEAL REFLUX DISEASE
     Route: 048
     Dates: start: 19950101, end: 20100101
  48. PRILOSEC [Suspect]
     Indication: GASTROOESOPHAGEAL REFLUX DISEASE
     Route: 065
     Dates: start: 19950101, end: 20100101
  49. PREDNISONE TAB [Concomitant]
     Dosage: 5-10 MG PRN
     Dates: start: 20060919
  50. ROBAXIN [Concomitant]
     Dosage: 750 MG EVERY 4-6 HOURS PRN
     Route: 048
     Dates: start: 20070905
  51. CELEBREX [Concomitant]
     Dates: start: 20021107

REACTIONS (6)
  - FOOT FRACTURE [None]
  - PAIN [None]
  - PAIN IN EXTREMITY [None]
  - OSTEOPOROSIS [None]
  - OSTEOPENIA [None]
  - MENTAL DISORDER [None]
